FAERS Safety Report 10007410 (Version 3)
Quarter: 2014Q2

REPORT INFORMATION
  Report Type: Spontaneous
  Country: JP (occurrence: JP)
  Receive Date: 20140313
  Receipt Date: 20140414
  Transmission Date: 20141212
  Serious: Yes (Disabling)
  Sender: FDA-Public Use
  Company Number: JP-GLAXOSMITHKLINE-B0975692A

PATIENT
  Age: 39 Year
  Sex: Female

DRUGS (6)
  1. RELENZA [Suspect]
     Indication: INFLUENZA
     Dosage: 10MG TWICE PER DAY
     Route: 055
     Dates: start: 20140226, end: 20140302
  2. MUCOSOLVAN [Concomitant]
     Dosage: 15MG THREE TIMES PER DAY
     Route: 048
     Dates: start: 20140226, end: 20140304
  3. FLAVERIC [Concomitant]
     Dosage: 20MG THREE TIMES PER DAY
     Route: 048
     Dates: start: 20140226, end: 20140304
  4. CALONAL [Concomitant]
     Indication: PYREXIA
     Route: 048
  5. AZUNOL [Concomitant]
     Route: 002
     Dates: start: 20140226
  6. CODEINE PHOSPHATE [Concomitant]
     Indication: ANTITUSSIVE THERAPY
     Route: 048

REACTIONS (1)
  - Dysgeusia [Unknown]
